FAERS Safety Report 15609512 (Version 1)
Quarter: 2018Q4

REPORT INFORMATION
  Report Type: Report from Study
  Country: OM (occurrence: OM)
  Receive Date: 20181112
  Receipt Date: 20181112
  Transmission Date: 20190205
  Serious: Yes (Other)
  Sender: FDA-Public Use
  Company Number: PHHY2018OM050005

PATIENT
  Age: 36 Year
  Sex: Female

DRUGS (18)
  1. IMMUNOGLOBULIN I.V [Concomitant]
     Active Substance: HUMAN IMMUNOGLOBULIN G
     Dosage: 70 G, QD
     Route: 042
     Dates: start: 20180109, end: 20180109
  2. ROMIPLOSTIM [Concomitant]
     Active Substance: ROMIPLOSTIM
     Dosage: 500 UG, QMO
     Route: 058
     Dates: start: 20180314, end: 20180314
  3. IMMUNOGLOBULIN I.V [Concomitant]
     Active Substance: HUMAN IMMUNOGLOBULIN G
     Indication: IMMUNE THROMBOCYTOPENIC PURPURA
     Dosage: UNK
     Route: 042
     Dates: start: 201710, end: 201710
  4. ROMIPLOSTIM [Concomitant]
     Active Substance: ROMIPLOSTIM
     Dosage: 500 UG, QMO
     Route: 058
     Dates: start: 20180515, end: 20180515
  5. RITUXIMAB. [Concomitant]
     Active Substance: RITUXIMAB
     Indication: IMMUNE THROMBOCYTOPENIC PURPURA
     Dosage: 690 MG, PRN (AS NEEDED)
     Route: 042
     Dates: start: 20180412, end: 20180419
  6. REVOLADE [Suspect]
     Active Substance: ELTROMBOPAG
     Indication: IMMUNE THROMBOCYTOPENIC PURPURA
     Dosage: 50 MG, QD
     Route: 048
     Dates: start: 20170920, end: 20171024
  7. IMMUNOGLOBULIN I.V [Concomitant]
     Active Substance: HUMAN IMMUNOGLOBULIN G
     Dosage: 80 G, UNK
     Route: 042
     Dates: start: 20180313, end: 20180313
  8. IMMUNOGLOBULIN I.V [Concomitant]
     Active Substance: HUMAN IMMUNOGLOBULIN G
     Dosage: 40 G, QD
     Route: 042
     Dates: start: 20180409, end: 20180410
  9. METHYLPREDNISOLONE. [Concomitant]
     Active Substance: METHYLPREDNISOLONE
     Indication: IMMUNE THROMBOCYTOPENIC PURPURA
     Dosage: 250 MG, UNK (PLANNED AS PULSE DOSE)
     Route: 042
     Dates: start: 20180412, end: 20180412
  10. PREDNISOLONE. [Concomitant]
     Active Substance: PREDNISOLONE
     Indication: IMMUNE THROMBOCYTOPENIC PURPURA
     Dosage: 10 MG, QD
     Route: 048
     Dates: start: 20180515
  11. METHYLPREDNISOLONE. [Concomitant]
     Active Substance: METHYLPREDNISOLONE
     Dosage: 250 MG, UNK (PLANNED AS PULSE DOSE)
     Route: 042
     Dates: start: 20180419, end: 20180419
  12. IMMUNOGLOBULIN I.V [Concomitant]
     Active Substance: HUMAN IMMUNOGLOBULIN G
     Dosage: 80 G, QD
     Route: 042
     Dates: start: 20180211, end: 20180211
  13. IMMUNOGLOBULIN I.V [Concomitant]
     Active Substance: HUMAN IMMUNOGLOBULIN G
     Dosage: 80 G, QD
     Route: 042
     Dates: start: 20180212, end: 20180212
  14. ROMIPLOSTIM [Concomitant]
     Active Substance: ROMIPLOSTIM
     Dosage: 500 UG, QW
     Route: 058
     Dates: start: 20180515
  15. REVOLADE [Suspect]
     Active Substance: ELTROMBOPAG
     Dosage: 75 MG, QD
     Route: 048
     Dates: start: 20171024, end: 20180211
  16. FERROUS SULFATE. [Concomitant]
     Active Substance: FERROUS SULFATE
     Indication: IRON DEFICIENCY ANAEMIA
     Dosage: 200 MG, BID
     Route: 048
     Dates: start: 20171024
  17. FOLIC ACID. [Concomitant]
     Active Substance: FOLIC ACID
     Indication: IRON DEFICIENCY ANAEMIA
     Dosage: 5 MG, QD
     Route: 048
     Dates: start: 20171024
  18. ROMIPLOSTIM [Concomitant]
     Active Substance: ROMIPLOSTIM
     Indication: IMMUNE THROMBOCYTOPENIC PURPURA
     Dosage: 250 UG, QW
     Route: 042
     Dates: start: 20180212

REACTIONS (2)
  - Cough [Recovered/Resolved]
  - Myelofibrosis [Not Recovered/Not Resolved]

NARRATIVE: CASE EVENT DATE: 20171205
